FAERS Safety Report 10220304 (Version 1)
Quarter: 2014Q2

REPORT INFORMATION
  Report Type: Spontaneous
  Country: GB (occurrence: GB)
  Receive Date: 20140606
  Receipt Date: 20140606
  Transmission Date: 20141212
  Serious: Yes (Other)
  Sender: FDA-Public Use
  Company Number: GB-ROCHE-1414051

PATIENT
  Sex: 0

DRUGS (1)
  1. OMALIZUMAB [Suspect]
     Indication: ASTHMA
     Route: 065

REACTIONS (2)
  - Asthma [Unknown]
  - Alopecia [Recovering/Resolving]
